FAERS Safety Report 8263129-6 (Version None)
Quarter: 2012Q2

REPORT INFORMATION
  Report Type: 
  Country: None (occurrence: None)
  Receive Date: 20120405
  Receipt Date: 20120323
  Transmission Date: 20120825
  Serious: Yes (Other)
  Sender: FDA-Public Use
  Company Number: DE-ELI_LILLY_AND_COMPANY-DE201203007747

PATIENT
  Age: 27 Year
  Sex: Female

DRUGS (4)
  1. CYMBALTA [Suspect]
     Dosage: 60 MG, UNKNOWN
     Route: 048
  2. IBUPROFEN [Concomitant]
     Dosage: 1200 MG, UNKNOWN
  3. ACC ACUTE [Concomitant]
     Dosage: 1 DF, QD
  4. DIPYRONE TAB [Concomitant]
     Dosage: UNK, UNKNOWN

REACTIONS (1)
  - PANCREATITIS [None]
